FAERS Safety Report 5738829-X (Version None)
Quarter: 2008Q2

REPORT INFORMATION
  Report Type: 
  Country: None (occurrence: None)
  Receive Date: 20080515
  Receipt Date: 20080402
  Transmission Date: 20081010
  Serious: No
  Sender: FDA-Public Use
  Company Number: A0718958A

PATIENT
  Sex: Female

DRUGS (2)
  1. VERAMYST [Suspect]
     Dosage: 1SPR PER DAY
     Route: 045
     Dates: start: 20080225
  2. NO CONCURRENT MEDICATION [Concomitant]

REACTIONS (2)
  - NASOPHARYNGITIS [None]
  - SINUSITIS [None]
